FAERS Safety Report 10234875 (Version 1)
Quarter: 2014Q2

REPORT INFORMATION
  Report Type: Spontaneous
  Country: US (occurrence: None)
  Receive Date: 20140520
  Receipt Date: 20140520
  Transmission Date: 20141212
  Serious: Yes (Other)
  Sender: FDA-Public Use
  Company Number: 2013PL000065

PATIENT
  Age: 48 Year
  Sex: Female
  Weight: 120.2 kg

DRUGS (19)
  1. AZATHIOPRINE (AZATHIOPRINE) [Suspect]
     Indication: PRODUCT USED FOR UNKNOWN INDICATION
     Dates: end: 201210
  2. HUMIRA [Suspect]
     Indication: CROHN^S DISEASE
     Dosage: 40 MG, EVERY TWO WEEKS
     Dates: start: 20120924
  3. CEFALEXIN (CEFALEXIN) [Suspect]
     Indication: PRODUCT USED FOR UNKNOWN INDICATION
  4. FERROUS SULFATE (FERROUS SULFATE) [Concomitant]
  5. BENTYL (DICYCLOVERINE HYDROCHLORIDE) [Concomitant]
  6. OMEPRAZOLE (OMEPRAZOLE) [Concomitant]
  7. ZYRTEC (CETIRIZINE HYDROCHLORIDE) [Concomitant]
  8. NORETHINDRONE [Concomitant]
  9. LIPITOR (ATORVASTATIN CALCIUM) [Concomitant]
  10. LISINOPRIL (LISINOPRIL) [Concomitant]
  11. VIT D3 (COLECALCIFEROL) [Concomitant]
  12. SINGULAIR (MONTELUKAST SODIUM) TABLET [Concomitant]
  13. KLONOPIN (CLONAZEPAM) [Concomitant]
  14. LEXAPRO (ESCITALOPRAM OXALATE) [Concomitant]
  15. SPIRIVA [Concomitant]
  16. FLOVENT (FLUTICASONE PROPIONATE) [Concomitant]
  17. FLONASE (FLUTICASONE PROPRIONATE) [Concomitant]
  18. VENTOLIN (SALBUTAMOL) [Concomitant]
  19. ADVAIR (FLUTICASONE PROPIONATE, SALMETEROL XINAFOATE) [Concomitant]

REACTIONS (16)
  - Squamous cell carcinoma [None]
  - Injection site haematoma [None]
  - Cough [None]
  - Gastrooesophageal reflux disease [None]
  - Oral discharge [None]
  - Headache [None]
  - Erythema [None]
  - Skin exfoliation [None]
  - Dry skin [None]
  - Injection site pain [None]
  - Skin infection [None]
  - Abdominal pain [None]
  - Diarrhoea [None]
  - Gastrointestinal sounds abnormal [None]
  - Fungal infection [None]
  - Antinuclear antibody increased [None]
